FAERS Safety Report 7395362-X (Version None)
Quarter: 2011Q2

REPORT INFORMATION
  Report Type: 
  Country: None (occurrence: None)
  Receive Date: 20110405
  Receipt Date: 20110330
  Transmission Date: 20111010
  Serious: Yes (Hospitalization, Other)
  Sender: FDA-Public Use
  Company Number: NZ-ABBOTT-11P-118-0715617-00

PATIENT
  Sex: Male

DRUGS (1)
  1. HUMIRA [Suspect]
     Indication: PSORIASIS

REACTIONS (5)
  - CELLULITIS [None]
  - DRUG DOSE OMISSION [None]
  - THERAPEUTIC RESPONSE DECREASED [None]
  - DEEP VEIN THROMBOSIS [None]
  - FALL [None]
